FAERS Safety Report 14739508 (Version 1)
Quarter: 2018Q2

REPORT INFORMATION
  Report Type: Spontaneous
  Country: US (occurrence: US)
  Receive Date: 20180410
  Receipt Date: 20180410
  Transmission Date: 20180711
  Serious: No
  Sender: FDA-Public Use
  Company Number: US-TEVA-2018-US-877632

PATIENT
  Age: 75 Year
  Sex: Female

DRUGS (1)
  1. LORAZEPAM. [Suspect]
     Active Substance: LORAZEPAM
     Dosage: 4.5 MILLIGRAM DAILY;
     Route: 065

REACTIONS (6)
  - Speech disorder [Unknown]
  - Aggression [Unknown]
  - Agitation [Unknown]
  - Myoclonus [Recovered/Resolved]
  - Withdrawal syndrome [Unknown]
  - Confusional state [Unknown]
